FAERS Safety Report 21926798 (Version 1)
Quarter: 2023Q1

REPORT INFORMATION
  Report Type: Spontaneous
  Country: US (occurrence: US)
  Receive Date: 20230130
  Receipt Date: 20230130
  Transmission Date: 20230418
  Serious: Yes (Hospitalization)
  Sender: FDA-Public Use
  Company Number: US-TEVA-2023-US-2849400

PATIENT
  Age: 15 Year
  Sex: Female

DRUGS (4)
  1. WARFARIN [Interacting]
     Active Substance: WARFARIN
     Indication: Anticoagulant therapy
     Dosage: 24.5 MG
     Route: 065
  2. MEDROXYPROGESTERONE [Suspect]
     Active Substance: MEDROXYPROGESTERONE
     Indication: Heavy menstrual bleeding
     Dosage: 8 MONTHS
     Route: 048
  3. NORETHINDRONE [Interacting]
     Active Substance: NORETHINDRONE
     Indication: Heavy menstrual bleeding
     Dosage: 5 MILLIGRAM DAILY; 5 MG DAILY
     Route: 065
  4. NORETHINDRONE [Interacting]
     Active Substance: NORETHINDRONE
     Dosage: 10 MILLIGRAM DAILY; DOSE INCREASED A MONTH LATER TO 10 MG DAILY
     Route: 065

REACTIONS (2)
  - Drug interaction [Unknown]
  - Drug ineffective [Unknown]
